FAERS Safety Report 8300046-7 (Version None)
Quarter: 2012Q2

REPORT INFORMATION
  Report Type: 
  Country: None (occurrence: None)
  Receive Date: 20120420
  Receipt Date: 20120416
  Transmission Date: 20120825
  Serious: No
  Sender: FDA-Public Use
  Company Number: US-PFIZER INC-2012095420

PATIENT
  Age: 66 Year
  Sex: Male
  Weight: 81.633 kg

DRUGS (2)
  1. PRILOSEC [Concomitant]
     Indication: DYSPEPSIA
     Dosage: 20 MG, DAILY
  2. VIAGRA [Suspect]
     Dosage: 100 MG, WEEKLY

REACTIONS (1)
  - DRUG INEFFECTIVE [None]
